FAERS Safety Report 8903745 (Version 1)
Quarter: 2012Q4

REPORT INFORMATION
  Report Type: 
  Country: GB (occurrence: GB)
  Receive Date: 20121113
  Receipt Date: 20121113
  Transmission Date: 20130627
  Serious: Yes (Other)
  Sender: FDA-Public Use
  Company Number: GB-JNJFOC-20121104832

PATIENT
  Age: 59 Year
  Sex: Female
  Weight: 84 kg

DRUGS (4)
  1. XARELTO [Suspect]
     Indication: POSTOPERATIVE CARE
     Route: 048
     Dates: start: 20120229
  2. CANDESARTAN [Concomitant]
     Route: 065
  3. CODEINE [Concomitant]
     Route: 065
  4. BENDROFLUAZIDE [Concomitant]
     Route: 065

REACTIONS (2)
  - Wound secretion [Not Recovered/Not Resolved]
  - Impaired healing [Not Recovered/Not Resolved]
